FAERS Safety Report 25992734 (Version 1)
Quarter: 2025Q4

REPORT INFORMATION
  Report Type: Spontaneous
  Country: GB (occurrence: GB)
  Receive Date: 20251103
  Receipt Date: 20251103
  Transmission Date: 20260118
  Serious: Yes (Life-Threatening, Hospitalization, Other)
  Sender: MERCK SHARP & DOHME LLC
  Company Number: None

PATIENT
  Age: 56 Year
  Sex: Female
  Weight: 80 kg

DRUGS (5)
  1. PEMBROLIZUMAB [Suspect]
     Active Substance: PEMBROLIZUMAB
     Indication: Malignant melanoma
     Dosage: 400MG
     Route: 065
     Dates: start: 20250401, end: 20251027
  2. NAPROXEN [Concomitant]
     Active Substance: NAPROXEN
     Indication: Pain
     Dates: start: 20241216
  3. OMEPRAZOLE [Concomitant]
     Active Substance: OMEPRAZOLE
     Indication: Gastrooesophageal reflux disease
     Dates: start: 20241216
  4. CYCLIZINE [Concomitant]
     Active Substance: CYCLIZINE
     Indication: Nausea
     Dates: start: 20250414
  5. GABAPENTIN [Concomitant]
     Active Substance: GABAPENTIN
     Indication: Restless legs syndrome
     Dates: start: 20210923

REACTIONS (5)
  - Nephritis [Recovering/Resolving]
  - Hyperkalaemia [Recovering/Resolving]
  - Confusional state [Recovering/Resolving]
  - Acute kidney injury [Recovering/Resolving]
  - Acidosis [Recovering/Resolving]

NARRATIVE: CASE EVENT DATE: 20251026
